FAERS Safety Report 18384666 (Version 8)
Quarter: 2021Q1

REPORT INFORMATION
  Report Type: Spontaneous
  Country: PT (occurrence: PT)
  Receive Date: 20201015
  Receipt Date: 20210128
  Transmission Date: 20210419
  Serious: Yes (Other)
  Sender: FDA-Public Use
  Company Number: NVSC2020PT274846

PATIENT
  Age: 84 Year
  Sex: Female

DRUGS (5)
  1. CIPROFLOXACIN. [Suspect]
     Active Substance: CIPROFLOXACIN
     Indication: CELLULITIS
     Dosage: UNK
     Route: 048
  2. ACENOCOUMAROL [Interacting]
     Active Substance: ACENOCOUMAROL
     Indication: CARDIAC VALVE PROSTHESIS USER
  3. ACENOCOUMAROL [Interacting]
     Active Substance: ACENOCOUMAROL
     Indication: ANTICOAGULANT THERAPY
     Dosage: UNK
     Route: 048
  4. METAMIZOLE [Interacting]
     Active Substance: METAMIZOLE
     Indication: CELLULITIS
     Dosage: UNK
     Route: 065
  5. TRAMADOL. [Interacting]
     Active Substance: TRAMADOL
     Indication: CELLULITIS
     Dosage: UNK
     Route: 065

REACTIONS (5)
  - Haematemesis [Unknown]
  - Drug interaction [Unknown]
  - Activated partial thromboplastin time prolonged [Unknown]
  - Ocular hyperaemia [Unknown]
  - Blood disorder [Unknown]
